FAERS Safety Report 7120401-0 (Version None)
Quarter: 2010Q4

REPORT INFORMATION
  Report Type: 
  Country: None (occurrence: None)
  Receive Date: 20101124
  Receipt Date: 20101029
  Transmission Date: 20110411
  Serious: No
  Sender: FDA-Public Use
  Company Number: US-BIOGENIDEC-2010BI033096

PATIENT
  Age: 28 Year
  Sex: Female

DRUGS (1)
  1. TYSABRI [Suspect]
     Indication: MULTIPLE SCLEROSIS
     Route: 042
     Dates: start: 20100816

REACTIONS (7)
  - ANXIETY [None]
  - CYTOKINE STORM [None]
  - INFUSION SITE REACTION [None]
  - NAUSEA [None]
  - PAIN [None]
  - PRURITUS [None]
  - URTICARIA [None]
